FAERS Safety Report 15723787 (Version 3)
Quarter: 2020Q2

REPORT INFORMATION
  Report Type: Spontaneous
  Country: US (occurrence: US)
  Receive Date: 20181214
  Receipt Date: 20200618
  Transmission Date: 20200713
  Serious: No
  Sender: FDA-Public Use
  Company Number: US-ACTELION-A-NJ2018-183762

PATIENT
  Sex: Female
  Weight: 54.42 kg

DRUGS (3)
  1. OPSUMIT [Suspect]
     Active Substance: MACITENTAN
     Dosage: 10 MG
     Route: 048
  2. OPSUMIT [Suspect]
     Active Substance: MACITENTAN
     Indication: PULMONARY ARTERIAL HYPERTENSION
     Dosage: 10 MG, QD
     Route: 048
     Dates: start: 20181114
  3. TADALAFIL. [Concomitant]
     Active Substance: TADALAFIL

REACTIONS (12)
  - Product dose omission [Recovered/Resolved]
  - Malaise [Unknown]
  - Constipation [Unknown]
  - Oedema peripheral [Unknown]
  - Palpitations [Unknown]
  - Dizziness postural [Unknown]
  - Memory impairment [Recovered/Resolved]
  - Pain [Unknown]
  - Cough [Unknown]
  - Abdominal distension [Unknown]
  - Chest pain [Unknown]
  - Feeling abnormal [Unknown]
